FAERS Safety Report 6925055-1 (Version None)
Quarter: 2010Q3

REPORT INFORMATION
  Report Type: 
  Country: None (occurrence: None)
  Receive Date: 20100816
  Receipt Date: 20100804
  Transmission Date: 20110219
  Serious: Yes (Hospitalization, Other)
  Sender: FDA-Public Use
  Company Number: US-PFIZER INC-2010077930

PATIENT
  Sex: Male
  Weight: 94.9 kg

DRUGS (12)
  1. SUNITINIB MALATE [Suspect]
     Indication: GLIOBLASTOMA MULTIFORME
     Dosage: 37.5 MG, 1X/DAY
     Route: 048
     Dates: start: 20100512, end: 20100617
  2. KEPPRA [Concomitant]
     Dosage: 1000 MG, 2X/DAY
  3. PRANDIN [Concomitant]
     Dosage: 1 MG, 3X/DAY
  4. CRESTOR [Concomitant]
     Dosage: 20 MG, DAILY
  5. SERTRALINE [Concomitant]
     Dosage: 50 MG, DAILY
  6. LISINOPRIL [Concomitant]
     Dosage: 10 MG, DAILY
  7. PANTOPRAZOLE [Concomitant]
     Dosage: 40 MG, DAILY
  8. DETROL [Concomitant]
     Dosage: 4 MG, DAILY
  9. AVODART [Concomitant]
     Dosage: 0.5 MG, DAILY
  10. AMLODIPINE/VALSARTAN [Concomitant]
     Dosage: 10/320 MG, DAILY
  11. DECADRON [Concomitant]
     Dosage: 4 MG, 2X/DAY
     Dates: start: 20100616
  12. SEROQUEL [Concomitant]
     Dosage: 12.5 MG, DAILY
     Dates: start: 20100609, end: 20100618

REACTIONS (6)
  - APHASIA [None]
  - APRAXIA [None]
  - CONFUSIONAL STATE [None]
  - ENCEPHALOPATHY [None]
  - MEMORY IMPAIRMENT [None]
  - MENTAL STATUS CHANGES [None]
